FAERS Safety Report 7820048-4 (Version None)
Quarter: 2011Q4

REPORT INFORMATION
  Report Type: 
  Country: None (occurrence: None)
  Receive Date: 20111018
  Receipt Date: 20111003
  Transmission Date: 20120403
  Serious: Yes (Other)
  Sender: FDA-Public Use
  Company Number: SE-SANOFI-AVENTIS-2011SA064669

PATIENT
  Age: 83 Year
  Sex: Male

DRUGS (15)
  1. LASIX [Suspect]
     Route: 048
     Dates: start: 20110805, end: 20110805
  2. SIMVASTATIN [Concomitant]
  3. ASPIRIN [Concomitant]
  4. NORMORIX MITE [Suspect]
     Dosage: 2.5/25MG DAILY
     Route: 048
     Dates: start: 20110808, end: 20110822
  5. PROSCAR [Concomitant]
  6. MADOPARK [Concomitant]
  7. PLAVIX [Concomitant]
  8. CALCIUM CARBONATE/COLECALCIFEROL/SODIUM [Concomitant]
     Route: 048
  9. PREDNISOLONE [Concomitant]
  10. OMEPRAZOLE [Concomitant]
  11. NITROMEX [Concomitant]
  12. IMOVANE [Concomitant]
  13. RAMIPRIL [Suspect]
     Route: 048
     Dates: end: 20110822
  14. METOPROLOL SUCCINATE [Concomitant]
  15. VIAGRA [Concomitant]

REACTIONS (2)
  - LIP SWELLING [None]
  - ANGIOEDEMA [None]
